FAERS Safety Report 5877412-2 (Version None)
Quarter: 2008Q3

REPORT INFORMATION
  Report Type: 
  Country: None (occurrence: None)
  Receive Date: 20080909
  Receipt Date: 20080820
  Transmission Date: 20090109
  Serious: Yes (Other)
  Sender: FDA-Public Use
  Company Number: 2008AL009730

PATIENT
  Age: 82 Year
  Sex: Female

DRUGS (1)
  1. DIGOXIN [Suspect]
     Indication: CARDIAC DISORDER
     Dosage: DAILY, PO
     Route: 048
     Dates: start: 20070616, end: 20080301

REACTIONS (2)
  - ANOREXIA [None]
  - WEIGHT DECREASED [None]
